FAERS Safety Report 5505927-5 (Version None)
Quarter: 2007Q4

REPORT INFORMATION
  Report Type: 
  Country: None (occurrence: None)
  Receive Date: 20071103
  Receipt Date: 20071026
  Transmission Date: 20080405
  Serious: Yes (Hospitalization, Other)
  Sender: FDA-Public Use
  Company Number: US-ELI_LILLY_AND_COMPANY-US200710006657

PATIENT
  Sex: Female

DRUGS (1)
  1. FORTEO [Suspect]
     Indication: OSTEOPOROSIS
     Dates: start: 20060101

REACTIONS (13)
  - ASTHMA [None]
  - CEREBROVASCULAR ACCIDENT [None]
  - COLLAPSE OF LUNG [None]
  - COORDINATION ABNORMAL [None]
  - DEPRESSION [None]
  - FALL [None]
  - GAIT DISTURBANCE [None]
  - MUSCULAR WEAKNESS [None]
  - OEDEMA PERIPHERAL [None]
  - OPEN FRACTURE [None]
  - PNEUMONIA [None]
  - RHEUMATOID ARTHRITIS [None]
  - SPEECH DISORDER [None]
